FAERS Safety Report 4668294-5 (Version None)
Quarter: 2005Q2

REPORT INFORMATION
  Report Type: 
  Country: None (occurrence: None)
  Receive Date: 20050523
  Receipt Date: 20050308
  Transmission Date: 20051028
  Serious: Yes (Other)
  Sender: FDA-Public Use
  Company Number: PHEH2005US02932

PATIENT
  Age: 78 Year
  Sex: Male

DRUGS (5)
  1. ZOMETA [Suspect]
     Indication: MULTIPLE MYELOMA
     Dosage: 4 MG, QMO
     Dates: start: 20020701, end: 20050209
  2. THALIDOMIDE [Concomitant]
     Dosage: 100 MG, UNK
     Dates: start: 20050209
  3. DECADRON PHOSPHATE [Concomitant]
     Dosage: 40 MG, QW
     Dates: start: 20050209
  4. CHEMOTHERAPEUTICS,OTHER [Concomitant]
  5. LIDOCAINE AND EPINEPHRINE [Concomitant]
     Indication: SURGERY
     Dosage: 1:50,000 USED IN ALL SURGERIES

REACTIONS (10)
  - BONE DISORDER [None]
  - BONE GRAFT [None]
  - DENTAL PROSTHESIS USER [None]
  - INFLAMMATION [None]
  - LOCAL ANAESTHESIA [None]
  - MEDICAL DEVICE REMOVAL [None]
  - NECROSIS [None]
  - OSTEONECROSIS [None]
  - PRIMARY SEQUESTRUM [None]
  - WOUND DEBRIDEMENT [None]
